FAERS Safety Report 9154338 (Version 1)
Quarter: 2013Q1

REPORT INFORMATION
  Report Type: Spontaneous
  Country: KI (occurrence: None)
  Receive Date: 20130207
  Receipt Date: 20130207
  Transmission Date: 20140127
  Serious: Yes (Other)
  Sender: FDA-Public Use
  Company Number: DKLU1088684

PATIENT
  Age: 66 Year
  Sex: Female

DRUGS (4)
  1. SABRIL [Suspect]
     Indication: EPILEPSY
  2. CARBAMAZEPINE [Suspect]
     Indication: EPILEPSY
  3. TOPIRAMATE [Suspect]
     Indication: EPILEPSY
  4. VALPROIC ACID [Suspect]
     Indication: EPILEPSY
     Dosage: 900 MG MILLIGRAM (S) , 1 IN 1 D
     Dates: start: 200501, end: 200902

REACTIONS (7)
  - Toxic encephalopathy [None]
  - Somnolence [None]
  - Apathy [None]
  - Abulia [None]
  - Urinary incontinence [None]
  - Ammonia increased [None]
  - Prothrombin time shortened [None]
